FAERS Safety Report 16134679 (Version 3)
Quarter: 2024Q3

REPORT INFORMATION
  Report Type: Report from Study
  Country: CA (occurrence: CA)
  Receive Date: 20190331
  Receipt Date: 20240830
  Transmission Date: 20241017
  Serious: Yes (Other)
  Sender: NOVARTIS
  Company Number: PHHY2019CA071777

PATIENT
  Age: 38 Year
  Sex: Male

DRUGS (2)
  1. GILENYA [Suspect]
     Active Substance: FINGOLIMOD HYDROCHLORIDE
     Indication: Relapsing-remitting multiple sclerosis
     Dosage: UNK
     Route: 048
     Dates: end: 20190426
  2. GILENYA [Suspect]
     Active Substance: FINGOLIMOD HYDROCHLORIDE
     Dosage: UNK (5 DAYS OUT OF 7)
     Route: 048
     Dates: start: 20160926

REACTIONS (2)
  - Expanded disability status scale score increased [Unknown]
  - Inappropriate schedule of product administration [Unknown]
